FAERS Safety Report 26177685 (Version 1)
Quarter: 2025Q4

REPORT INFORMATION
  Report Type: Spontaneous
  Country: US (occurrence: US)
  Receive Date: 20251219
  Receipt Date: 20251219
  Transmission Date: 20260117
  Serious: No
  Sender: SUPERNUS PHARMACEUTICALS, INC
  Company Number: US-SUP-SUP202509-003982

PATIENT
  Age: 44 Year
  Sex: Male
  Weight: 122.4 kg

DRUGS (1)
  1. OXTELLAR XR [Suspect]
     Active Substance: OXCARBAZEPINE
     Indication: Seizure
     Dosage: 600 MG (3 TABLETS A DAY)

REACTIONS (2)
  - Memory impairment [Not Recovered/Not Resolved]
  - Drug ineffective [Unknown]
